FAERS Safety Report 9190875 (Version 3)
Quarter: 2013Q2

REPORT INFORMATION
  Report Type: Spontaneous
  Country: FR (occurrence: FR)
  Receive Date: 20130326
  Receipt Date: 20130402
  Transmission Date: 20140414
  Serious: Yes (Hospitalization)
  Sender: FDA-Public Use
  Company Number: FR-VERTEX PHARMACEUTICALS INC.-2013-004060

PATIENT
  Age: 47 Year
  Sex: Male

DRUGS (6)
  1. INCIVO [Suspect]
     Indication: HEPATITIS C
     Dosage: TABLET
     Route: 048
     Dates: start: 20121119
  2. PEGINTERFERON ALFA-2A [Suspect]
     Indication: HEPATITIS C
     Dosage: 180 ?G, QW
     Route: 058
     Dates: start: 20121119
  3. RIBAVIRIN [Suspect]
     Indication: HEPATITIS C
     Dosage: 600 MG, BID
     Route: 048
     Dates: start: 20121119
  4. BROMAZEPAM [Concomitant]
     Indication: ANXIETY
     Dosage: DOSAGE FORM: UNSPECIFIED
     Route: 065
  5. VALPROMIDE [Concomitant]
     Indication: AFFECTIVE DISORDER
     Dosage: DOSAGE FORM: UNSPECIFIED
     Route: 065
  6. SUBUTEX [Concomitant]
     Dosage: DOSAGE FORM: UNKNOWN
     Route: 065

REACTIONS (6)
  - Asthenia [Unknown]
  - General physical health deterioration [Recovered/Resolved]
  - Depression [Recovered/Resolved]
  - Decreased appetite [Unknown]
  - Anaemia [Recovered/Resolved]
  - Inappropriate schedule of drug administration [Unknown]
